FAERS Safety Report 25500241 (Version 1)
Quarter: 2025Q2

REPORT INFORMATION
  Report Type: Spontaneous
  Country: US (occurrence: None)
  Receive Date: 20250628
  Receipt Date: 20250628
  Transmission Date: 20250716
  Serious: Yes (Disabling)
  Sender: FDA-CTU
  Company Number: None

PATIENT
  Age: 67 Year
  Sex: Female
  Weight: 81.9 kg

DRUGS (16)
  1. CEFEPIME [Suspect]
     Active Substance: CEFEPIME HYDROCHLORIDE
     Indication: Infection
     Dosage: FREQUENCY : EVERY 12 HOURS;?
     Route: 042
     Dates: start: 20250620, end: 20250625
  2. METFORMIN [Concomitant]
     Active Substance: METFORMIN HYDROCHLORIDE
  3. PEPCID [Concomitant]
     Active Substance: FAMOTIDINE
  4. GAVISCON [Concomitant]
     Active Substance: ALUMINUM HYDROXIDE\MAGNESIUM CARBONATE
  5. TYLENOL [Concomitant]
     Active Substance: ACETAMINOPHEN
  6. MOUNJARO [Concomitant]
     Active Substance: TIRZEPATIDE
  7. ALLEGRA [Concomitant]
     Active Substance: FEXOFENADINE HYDROCHLORIDE
  8. Astlin [Concomitant]
  9. Ketaconozole shampoo 2% [Concomitant]
  10. VITAMIN D3 [Concomitant]
     Active Substance: CHOLECALCIFEROL
  11. NM-6603 [Concomitant]
     Active Substance: NM-6603
  12. MAGNESIUM CITRATE [Concomitant]
     Active Substance: MAGNESIUM CITRATE
  13. Fleet supporitory [Concomitant]
  14. METAMUCIL [Concomitant]
     Active Substance: PLANTAGO SEED
  15. GLUCOSAMINE [Concomitant]
     Active Substance: GLUCOSAMINE
  16. chonodrotin [Concomitant]

REACTIONS (11)
  - Swelling [None]
  - Pain [None]
  - Burning sensation [None]
  - Burning sensation [None]
  - Visual impairment [None]
  - Fatigue [None]
  - Pain in extremity [None]
  - Muscular weakness [None]
  - Headache [None]
  - Neck pain [None]
  - Balance disorder [None]

NARRATIVE: CASE EVENT DATE: 20250624
